FAERS Safety Report 15000228 (Version 3)
Quarter: 2018Q4

REPORT INFORMATION
  Report Type: Spontaneous
  Country: JP (occurrence: JP)
  Receive Date: 20180612
  Receipt Date: 20181030
  Transmission Date: 20190204
  Serious: Yes (Death, Other)
  Sender: FDA-Public Use
  Company Number: JP-GLAXOSMITHKLINE-JP2018JPN102067

PATIENT
  Age: 60 Year
  Sex: Male

DRUGS (1)
  1. LAMICTAL [Suspect]
     Active Substance: LAMOTRIGINE
     Indication: BIPOLAR DISORDER
     Dosage: 250 MG, 1D
     Route: 048

REACTIONS (3)
  - Condition aggravated [Fatal]
  - Pancreatic carcinoma [Fatal]
  - Feeding disorder [Fatal]

NARRATIVE: CASE EVENT DATE: 20180607
